FAERS Safety Report 14898978 (Version 1)
Quarter: 2018Q2

REPORT INFORMATION
  Report Type: Report from Study
  Country: None (occurrence: RO)
  Receive Date: 20180515
  Receipt Date: 20180515
  Transmission Date: 20180711
  Serious: Yes (Other)
  Sender: FDA-Public Use
  Company Number: RO-ABBVIE-18S-135-2356340-00

PATIENT
  Age: 65 Year
  Sex: Female

DRUGS (8)
  1. EXVIERA [Suspect]
     Active Substance: DASABUVIR
     Indication: HEPATIC CIRRHOSIS
  2. TENAXUM [Concomitant]
     Active Substance: RILMENIDINE
     Indication: CARDIAC DISORDER
     Route: 048
     Dates: start: 20180502
  3. PENTOXI RETARD [Concomitant]
     Active Substance: PENTOXIFYLLINE
     Indication: CARDIOVASCULAR DISORDER
     Route: 048
     Dates: start: 20180502
  4. VIEKIRAX [Suspect]
     Active Substance: OMBITASVIR\PARITAPREVIR\RITONAVIR
     Indication: HEPATITIS C
     Route: 048
     Dates: start: 20180502
  5. VIEKIRAX [Suspect]
     Active Substance: OMBITASVIR\PARITAPREVIR\RITONAVIR
     Indication: HEPATIC CIRRHOSIS
  6. EXVIERA [Suspect]
     Active Substance: DASABUVIR
     Indication: HEPATITIS C
     Route: 048
     Dates: start: 20180502
  7. PRESTARIUM [Concomitant]
     Active Substance: PERINDOPRIL
     Indication: CARDIAC DISORDER
     Route: 048
     Dates: start: 20180502
  8. BETALOC ZOK [Concomitant]
     Active Substance: METOPROLOL SUCCINATE
     Indication: CARDIAC DISORDER
     Route: 048

REACTIONS (8)
  - Panic attack [Recovering/Resolving]
  - Panic attack [Recovering/Resolving]
  - Blood pressure fluctuation [Recovering/Resolving]
  - Dysphagia [Unknown]
  - Choking sensation [Recovering/Resolving]
  - Panic attack [Recovering/Resolving]
  - Choking sensation [Recovering/Resolving]
  - Choking sensation [Recovering/Resolving]

NARRATIVE: CASE EVENT DATE: 20180511
